FAERS Safety Report 10069406 (Version 3)
Quarter: 2015Q4

REPORT INFORMATION
  Report Type: Spontaneous
  Country: US (occurrence: US)
  Receive Date: 20140410
  Receipt Date: 20151209
  Transmission Date: 20160304
  Serious: Yes (Death, Hospitalization, Other)
  Sender: FDA-Public Use
  Company Number: US-PFIZER INC-2014096841

PATIENT
  Age: 40 Year
  Sex: Female
  Weight: 59 kg

DRUGS (10)
  1. REMODULIN [Concomitant]
     Active Substance: TREPROSTINIL
     Indication: PULMONARY HYPERTENSION
     Dosage: 200000 NG/ML RATE OF 35ML PER 24 HR CONTINUOUS INFUSION
     Dates: start: 201412, end: 20151126
  2. LASIX [Concomitant]
     Active Substance: FUROSEMIDE
     Indication: FLUID RETENTION
     Dosage: UNK
     Route: 042
  3. OXYCONTIN [Concomitant]
     Active Substance: OXYCODONE HYDROCHLORIDE
     Indication: PAIN
     Dosage: 10 MG, AS NEEDED
  4. REVATIO [Suspect]
     Active Substance: SILDENAFIL CITRATE
     Indication: PULMONARY HYPERTENSION
     Dosage: 20 MG, 2X/DAY
  5. PHENERGAN [Concomitant]
     Active Substance: PROMETHAZINE HYDROCHLORIDE
     Dosage: UNK
  6. CYCLOBENZAPRINE [Concomitant]
     Active Substance: CYCLOBENZAPRINE
     Indication: PAIN
     Dosage: 10 MG, AS NEEDED
  7. SPIRONOLACTONE. [Concomitant]
     Active Substance: SPIRONOLACTONE
     Indication: FLUID RETENTION
     Dosage: 25 MG, 1X/DAY
  8. HYDROCODONE [Concomitant]
     Active Substance: HYDROCODONE
     Indication: PAIN
     Dosage: 10/325MG, AS NEEDED
  9. ZOFRAN [Concomitant]
     Active Substance: ONDANSETRON HYDROCHLORIDE
     Dosage: UNK
  10. CIPROFLOXACIN. [Concomitant]
     Active Substance: CIPROFLOXACIN
     Indication: INFECTION PROPHYLAXIS
     Dosage: 250 MG, 3 TIMES A WEEK

REACTIONS (13)
  - Renal impairment [Recovering/Resolving]
  - Death [Fatal]
  - Condition aggravated [Unknown]
  - Myocardial infarction [Unknown]
  - Disease recurrence [Unknown]
  - Cardiac failure [Unknown]
  - Pulmonary hypertension [Unknown]
  - Cerebrovascular accident [Unknown]
  - Cholecystitis infective [Not Recovered/Not Resolved]
  - Malaise [Unknown]
  - Bacteraemia [Unknown]
  - Hepatic cirrhosis [Unknown]
  - Cardiac infection [Unknown]

NARRATIVE: CASE EVENT DATE: 2011
